FAERS Safety Report 22321404 (Version 1)
Quarter: 2023Q2

REPORT INFORMATION
  Report Type: Spontaneous
  Country: US (occurrence: US)
  Receive Date: 20230515
  Receipt Date: 20230515
  Transmission Date: 20230721
  Serious: No
  Sender: FDA-Public Use
  Company Number: US-IDORSIA-005014-2023-US

PATIENT
  Sex: Female

DRUGS (1)
  1. QUVIVIQ [Suspect]
     Active Substance: DARIDOREXANT
     Indication: Insomnia
     Dosage: 50 MG
     Route: 048
     Dates: start: 20230507, end: 20230508

REACTIONS (5)
  - Abdominal discomfort [Not Recovered/Not Resolved]
  - Night sweats [Not Recovered/Not Resolved]
  - Rash [Not Recovered/Not Resolved]
  - Illness [Not Recovered/Not Resolved]
  - Drug ineffective [Not Recovered/Not Resolved]

NARRATIVE: CASE EVENT DATE: 20230507
